FAERS Safety Report 9375704 (Version 1)
Quarter: 2013Q2

REPORT INFORMATION
  Report Type: Spontaneous
  Country: IL (occurrence: IL)
  Receive Date: 20130628
  Receipt Date: 20130628
  Transmission Date: 20140414
  Serious: Yes (Other)
  Sender: FDA-Public Use
  Company Number: IL-BAXTER-2013BAX025100

PATIENT
  Age: 31 Year
  Sex: Male

DRUGS (6)
  1. ENDOXAN-1G [Suspect]
     Indication: VASCULITIS
     Route: 042
  2. ENDOXAN-1G [Suspect]
     Indication: ANTIPHOSPHOLIPID SYNDROME
  3. ENDOXAN-1G [Suspect]
     Indication: ENCEPHALITIS
  4. KIOVIG [Suspect]
     Indication: VASCULITIS
     Route: 042
  5. METHYLPREDNISOLONE [Suspect]
     Indication: ENCEPHALITIS
     Route: 065
  6. METHYLPREDNISOLONE [Suspect]
     Indication: ANTIPHOSPHOLIPID SYNDROME

REACTIONS (9)
  - Drug ineffective [Not Recovered/Not Resolved]
  - Deep vein thrombosis [Unknown]
  - Convulsion [Unknown]
  - Pancytopenia [Recovered/Resolved]
  - Confusional state [Recovered/Resolved]
  - VIIth nerve paralysis [Unknown]
  - Pyrexia [Recovered/Resolved]
  - Cellulitis [Recovered/Resolved]
  - Hepatic enzyme abnormal [Unknown]
